FAERS Safety Report 7794609-5 (Version None)
Quarter: 2011Q4

REPORT INFORMATION
  Report Type: 
  Country: None (occurrence: None)
  Receive Date: 20111004
  Receipt Date: 20110922
  Transmission Date: 20120403
  Serious: Yes (Death, Life-Threatening, Hospitalization, Other)
  Sender: FDA-Public Use
  Company Number: JP-ROCHE-673173

PATIENT
  Sex: Female
  Weight: 38 kg

DRUGS (22)
  1. AVASTIN [Suspect]
     Route: 041
     Dates: start: 20091104, end: 20091118
  2. LEVOLEUCOVORIN CALCIUM [Concomitant]
     Route: 041
     Dates: start: 20091007, end: 20091007
  3. GRANISETRON [Concomitant]
     Route: 041
     Dates: start: 20091007, end: 20091007
  4. EFUDEX [Concomitant]
     Route: 041
     Dates: start: 20091007, end: 20091001
  5. EFUDEX [Concomitant]
     Route: 040
     Dates: start: 20091104, end: 20091118
  6. CAMPTOSAR [Concomitant]
     Route: 041
     Dates: start: 20091104, end: 20091118
  7. EFUDEX [Concomitant]
     Route: 041
     Dates: start: 20091104, end: 20091101
  8. AVASTIN [Suspect]
     Indication: COLON CANCER METASTATIC
     Route: 041
     Dates: start: 20090701, end: 20090916
  9. LEVOLEUCOVORIN CALCIUM [Concomitant]
     Route: 041
     Dates: start: 20090602, end: 20090916
  10. EFUDEX [Concomitant]
     Route: 040
     Dates: start: 20091007, end: 20091007
  11. DECADRON [Concomitant]
     Route: 041
     Dates: start: 20090602, end: 20090916
  12. GRANISETRON [Concomitant]
     Route: 041
     Dates: start: 20090602, end: 20090916
  13. LOXONIN [Concomitant]
     Route: 048
     Dates: start: 20090530, end: 20091130
  14. EFUDEX [Concomitant]
     Route: 041
     Dates: start: 20090602, end: 20090901
  15. DECADRON [Concomitant]
     Route: 041
     Dates: start: 20091104, end: 20091118
  16. GRANISETRON [Concomitant]
     Route: 041
     Dates: start: 20091104, end: 20091118
  17. LEVOLEUCOVORIN CALCIUM [Concomitant]
     Route: 041
     Dates: start: 20091104, end: 20091118
  18. AVASTIN [Suspect]
     Route: 041
     Dates: start: 20091007, end: 20091007
  19. OXALIPLATIN [Concomitant]
     Indication: COLON CANCER METASTATIC
     Route: 041
     Dates: start: 20090602, end: 20090916
  20. EFUDEX [Concomitant]
     Route: 040
     Dates: start: 20090602, end: 20090916
  21. CAMPTOSAR [Concomitant]
     Route: 041
     Dates: start: 20091007, end: 20091007
  22. DECADRON [Concomitant]
     Route: 041
     Dates: start: 20091007, end: 20091007

REACTIONS (8)
  - NEUROPATHY PERIPHERAL [None]
  - HEPATIC FAILURE [None]
  - ILEAL ULCER [None]
  - ILEAL PERFORATION [None]
  - SMALL INTESTINE ULCER [None]
  - GASTROINTESTINAL PERFORATION [None]
  - SEPTIC SHOCK [None]
  - EPISTAXIS [None]
